FAERS Safety Report 10313903 (Version 3)
Quarter: 2015Q2

REPORT INFORMATION
  Report Type: Spontaneous
  Country: US (occurrence: US)
  Receive Date: 20140718
  Receipt Date: 20150408
  Transmission Date: 20150821
  Serious: Yes (Hospitalization, Other)
  Sender: FDA-Public Use
  Company Number: US-BAYER-2014-107982

PATIENT
  Age: 28 Year
  Sex: Female
  Weight: 66.67 kg

DRUGS (9)
  1. YASMIN [Suspect]
     Active Substance: DROSPIRENONE\ETHINYL ESTRADIOL
     Dosage: UNK
     Route: 048
     Dates: start: 200702, end: 20070309
  2. PERCOCET [Concomitant]
     Active Substance: ACETAMINOPHEN\OXYCODONE HYDROCHLORIDE
  3. TYLENOL PM [Concomitant]
     Active Substance: ACETAMINOPHEN\DIPHENHYDRAMINE
  4. ZOLOFT [Concomitant]
     Active Substance: SERTRALINE HYDROCHLORIDE
     Indication: DEPRESSION
     Dosage: 100 MG, UNK
     Route: 048
     Dates: start: 20070216, end: 20070308
  5. COLAZAL [Concomitant]
     Active Substance: BALSALAZIDE DISODIUM
     Indication: COLITIS ULCERATIVE
     Dosage: UNK
     Route: 048
     Dates: start: 20070216, end: 20070308
  6. COLACE [Concomitant]
     Active Substance: DOCUSATE SODIUM
  7. DILAUDID [Concomitant]
     Active Substance: HYDROMORPHONE HYDROCHLORIDE
  8. MOTRIN [Concomitant]
     Active Substance: IBUPROFEN
     Dosage: 2-3 TIMES PER MONTH
     Dates: start: 2005
  9. SPIRONOLACTONE. [Concomitant]
     Active Substance: SPIRONOLACTONE
     Indication: ACNE
     Dosage: 100 MG, QD
     Route: 048
     Dates: start: 20070216, end: 20070308

REACTIONS (11)
  - Pain [None]
  - Pulmonary embolism [None]
  - Chest pain [None]
  - Pulmonary infarction [None]
  - Injury [None]
  - Fatigue [None]
  - Pulmonary embolism [None]
  - Dizziness [None]
  - Dyspnoea [None]
  - General physical health deterioration [None]
  - Pulmonary infarction [None]

NARRATIVE: CASE EVENT DATE: 200703
